FAERS Safety Report 5252087-4 (Version None)
Quarter: 2007Q1

REPORT INFORMATION
  Report Type: 
  Country: None (occurrence: None)
  Receive Date: 20070228
  Receipt Date: 20070221
  Transmission Date: 20070707
  Serious: Yes (Other)
  Sender: FDA-Public Use
  Company Number: NO-ABBOTT-07P-122-0359961-00

PATIENT
  Sex: Male

DRUGS (3)
  1. CLARITHROMYCIN [Suspect]
     Indication: PNEUMONIA
     Dates: start: 20061013, end: 20061018
  2. WARFARIN SODIUM [Interacting]
     Indication: ATRIAL FIBRILLATION
     Dates: start: 20050929, end: 20061018
  3. WARFARIN SODIUM [Interacting]
     Dates: start: 20061020

REACTIONS (2)
  - DRUG INTERACTION [None]
  - INTERNATIONAL NORMALISED RATIO INCREASED [None]
